FAERS Safety Report 11031840 (Version 2)
Quarter: 2015Q3

REPORT INFORMATION
  Report Type: Report from Study
  Country: JP (occurrence: JP)
  Receive Date: 20150415
  Receipt Date: 20150706
  Transmission Date: 20151125
  Serious: Yes (Hospitalization, Other)
  Sender: FDA-Public Use
  Company Number: JP-ELI_LILLY_AND_COMPANY-JP201504003233

PATIENT
  Age: 73 Year
  Sex: Male
  Weight: 54 kg

DRUGS (6)
  1. CRESTOR [Concomitant]
     Active Substance: ROSUVASTATIN CALCIUM
     Indication: DYSLIPIDAEMIA
     Dosage: 2.5 MG, QD
     Route: 048
     Dates: start: 20140418
  2. ROZEREM [Concomitant]
     Active Substance: RAMELTEON
     Indication: INSOMNIA
     Dosage: 8 MG, QD
     Route: 048
     Dates: start: 20140806
  3. PRASUGREL HYDROCHLORIDE [Suspect]
     Active Substance: PRASUGREL HYDROCHLORIDE
     Indication: ISCHAEMIC STROKE
     Dosage: UNK
     Route: 048
     Dates: start: 20140808, end: 20150402
  4. NEOPHAGEN C [Concomitant]
     Indication: PROPHYLAXIS
     Dosage: 3 DF, TID
     Route: 048
     Dates: start: 20140509
  5. ZETIA [Concomitant]
     Active Substance: EZETIMIBE
     Indication: DYSLIPIDAEMIA
     Dosage: 10 MG, QD
     Route: 048
     Dates: start: 20140418
  6. MUCOSTA [Concomitant]
     Active Substance: REBAMIPIDE
     Indication: PROPHYLAXIS
     Dosage: 100 MG, TID
     Route: 048
     Dates: start: 20141031

REACTIONS (1)
  - Rectosigmoid cancer [Recovering/Resolving]

NARRATIVE: CASE EVENT DATE: 20150402
